FAERS Safety Report 18252543 (Version 5)
Quarter: 2020Q4

REPORT INFORMATION
  Report Type: Spontaneous
  Country: BE (occurrence: BE)
  Receive Date: 20200910
  Receipt Date: 20201231
  Transmission Date: 20210113
  Serious: Yes (Hospitalization)
  Sender: FDA-Public Use
  Company Number: BE-SAMSUNG BIOEPIS-SB-2020-28142

PATIENT
  Age: 68 Year
  Sex: Male
  Weight: 120.9 kg

DRUGS (24)
  1. ALDACTONE [Suspect]
     Active Substance: SPIRONOLACTONE
     Indication: HYPERTENSION
     Route: 065
     Dates: start: 20191217, end: 20200908
  2. COLCHICINE. [Concomitant]
     Active Substance: COLCHICINE
     Indication: GOUT
     Dosage: 1-2X/D
     Route: 065
     Dates: start: 20200713, end: 20200717
  3. MONURIL [Concomitant]
     Active Substance: FOSFOMYCIN TROMETHAMINE
     Indication: URINARY TRACT INFECTION
     Dosage: 3 G, 1X
     Route: 065
     Dates: start: 20200720, end: 20200720
  4. BISOPROLOL EG [Concomitant]
     Active Substance: BISOPROLOL
     Indication: HYPERTENSION
     Route: 065
     Dates: start: 20181006
  5. BISOPROLOL EG [Concomitant]
     Active Substance: BISOPROLOL
     Dosage: ADDITIONAL 2.5 MILLIGRAM
     Route: 065
  6. OZEMPIC [Concomitant]
     Active Substance: SEMAGLUTIDE
     Indication: DIABETES MELLITUS
     Route: 058
     Dates: start: 20190709
  7. PENTASA [Concomitant]
     Active Substance: MESALAMINE
     Indication: COLITIS ULCERATIVE
     Dosage: 2 GRAM SACHET, ONE EACH
     Route: 065
     Dates: start: 20200709
  8. XANAX [Concomitant]
     Active Substance: ALPRAZOLAM
     Indication: INSOMNIA
     Dosage: 1X/D; INTERMITTENT
     Route: 065
     Dates: start: 20200718, end: 20200813
  9. GLIMEPIRIDE EG [Concomitant]
     Indication: DIABETES MELLITUS
     Route: 065
     Dates: start: 20181011
  10. COVERSYL [Concomitant]
     Active Substance: PERINDOPRIL
     Indication: HYPERTENSION
     Route: 065
     Dates: start: 20190211
  11. XULTOPHY 100/3.6 [Concomitant]
     Active Substance: INSULIN DEGLUDEC\LIRAGLUTIDE
     Indication: PRODUCT USED FOR UNKNOWN INDICATION
     Dosage: 16 UNITS
     Route: 065
  12. AMLOR [Concomitant]
     Active Substance: AMLODIPINE BESYLATE
     Indication: PRODUCT USED FOR UNKNOWN INDICATION
     Route: 065
  13. SIMVASTATIN SANDOZ/ ZOCOR [Concomitant]
     Indication: HYPERCHOLESTEROLAEMIA
     Route: 065
  14. PANTOMED [Concomitant]
     Indication: GASTROOESOPHAGEAL REFLUX DISEASE
     Dosage: 1-2X/D
     Route: 065
     Dates: start: 20200719, end: 20200908
  15. LANTUS [Concomitant]
     Active Substance: INSULIN GLARGINE
     Indication: DIABETES MELLITUS
     Dosage: SOLOSTAR PEN, 4E/D
     Route: 058
  16. FOLAVIT [Concomitant]
     Active Substance: FOLIC ACID
     Indication: FOLATE DEFICIENCY
     Route: 065
     Dates: start: 20200817
  17. ALDACTONE [Suspect]
     Active Substance: SPIRONOLACTONE
     Indication: RENAL FAILURE
  18. METFORMIN [Suspect]
     Active Substance: METFORMIN HYDROCHLORIDE
     Indication: DIABETES MELLITUS
     Dosage: UNKNOWN
     Route: 065
  19. COVERSYL [Concomitant]
     Active Substance: PERINDOPRIL
     Indication: CARDIAC FAILURE
     Route: 065
  20. METFORMAX [Concomitant]
     Active Substance: METFORMIN HYDROCHLORIDE
     Indication: DIABETES MELLITUS
     Route: 065
     Dates: start: 20190621
  21. IMRALDI [Suspect]
     Active Substance: ADALIMUMAB
     Indication: COLITIS ULCERATIVE
     Route: 058
     Dates: start: 20191209, end: 20200817
  22. ZYLORIC [Suspect]
     Active Substance: ALLOPURINOL
     Indication: NEPHROLITHIASIS
     Route: 065
     Dates: start: 20200713
  23. CLOPIDOGREL EG [Concomitant]
     Indication: ARTERIAL THROMBOSIS
     Route: 065
     Dates: start: 20200714, end: 20200724
  24. BURINEX [Concomitant]
     Active Substance: BUMETANIDE
     Indication: OEDEMA
     Dosage: 2 MG/4 ML, 1 X
     Route: 065
     Dates: start: 20200726, end: 20200726

REACTIONS (31)
  - Vomiting [Recovered/Resolved]
  - Acute kidney injury [Recovered/Resolved with Sequelae]
  - Hypocalcaemia [Recovered/Resolved]
  - Hyperkalaemia [Recovered/Resolved]
  - Metabolic acidosis [Unknown]
  - Lung hernia [Unknown]
  - Vitamin D deficiency [Unknown]
  - Hyperphosphataemia [Recovered/Resolved]
  - Tricuspid valve incompetence [Not Recovered/Not Resolved]
  - Anaemia [Not Recovered/Not Resolved]
  - Drug level increased [Unknown]
  - Diarrhoea [Recovered/Resolved]
  - Hydronephrosis [Recovered/Resolved]
  - Cardiomyopathy [Not Recovered/Not Resolved]
  - Diverticulum [Unknown]
  - Nephrolithiasis [Unknown]
  - Lymphoma [Unknown]
  - Thrombocytopenia [Recovered/Resolved]
  - Cough [Recovered/Resolved]
  - Dyspnoea [Recovered/Resolved]
  - Streptococcal sepsis [Recovered/Resolved]
  - Mass [Recovered/Resolved]
  - Asthenia [Recovered/Resolved]
  - Ventricular tachycardia [Unknown]
  - Hypoalbuminaemia [Unknown]
  - Product substitution issue [Unknown]
  - Ulcer haemorrhage [Unknown]
  - Duodenal ulcer [Unknown]
  - Vasculitis [Unknown]
  - Gastrointestinal haemorrhage [Unknown]
  - Chronic kidney disease [Unknown]

NARRATIVE: CASE EVENT DATE: 202006
